FAERS Safety Report 15324886 (Version 15)
Quarter: 2019Q3

REPORT INFORMATION
  Report Type: Spontaneous
  Country: CA (occurrence: CA)
  Receive Date: 20180828
  Receipt Date: 20190919
  Transmission Date: 20191004
  Serious: Yes (Other)
  Sender: FDA-Public Use
  Company Number: CA-CELLTRION INC.-2018CA020803

PATIENT

DRUGS (30)
  1. INFLECTRA [Suspect]
     Active Substance: INFLIXIMAB-DYYB
     Dosage: 700MG MAINTENANCE EVERY 4 WEEKS
     Route: 042
     Dates: start: 20190110
  2. ACETAMINOPHEN. [Concomitant]
     Active Substance: ACETAMINOPHEN
     Indication: PROPHYLAXIS
     Dosage: 650 MG, UNK
     Dates: start: 20181115, end: 20181115
  3. INFLECTRA [Suspect]
     Active Substance: INFLIXIMAB-DYYB
     Dosage: 700MG MAINTENANCE EVERY 4 WEEKS
     Route: 042
     Dates: start: 20190531, end: 20190531
  4. INFLECTRA [Suspect]
     Active Substance: INFLIXIMAB-DYYB
     Dosage: 700MG EVERY 4 WEEKS
     Route: 042
     Dates: start: 20190812
  5. MEZAVANT [Concomitant]
     Active Substance: MESALAMINE
     Dosage: 3.6 G, DAILY
     Route: 048
  6. INFLECTRA [Suspect]
     Active Substance: INFLIXIMAB-DYYB
     Dosage: 700MG MAINTENANCE EVERY 4 WEEKS
     Route: 042
     Dates: start: 20181115
  7. INFLECTRA [Suspect]
     Active Substance: INFLIXIMAB-DYYB
     Dosage: 700MG MAINTENANCE EVERY 4 WEEKS
     Route: 042
     Dates: start: 20190214
  8. INFLECTRA [Suspect]
     Active Substance: INFLIXIMAB-DYYB
     Dosage: 700MG EVERY 4 WEEKS
     Route: 042
     Dates: start: 20190909
  9. DIPHENHYDRAMINE. [Concomitant]
     Active Substance: DIPHENHYDRAMINE
     Indication: PROPHYLAXIS
     Dosage: 50 MG PER OS
     Dates: start: 20181115, end: 20181115
  10. INFLECTRA [Suspect]
     Active Substance: INFLIXIMAB-DYYB
     Dosage: 700 MG, MAINTENANCE EVERY 4 WEEKS
     Route: 042
     Dates: start: 20180719, end: 20180719
  11. MEZAVANT [Concomitant]
     Active Substance: MESALAMINE
     Dosage: 4.8 G, DAILY
     Route: 048
  12. INFLECTRA [Suspect]
     Active Substance: INFLIXIMAB-DYYB
     Dosage: 700 MG, MAINTENANCE EVERY 4 WEEKS
     Route: 042
     Dates: start: 20180919, end: 20180919
  13. INFLECTRA [Suspect]
     Active Substance: INFLIXIMAB-DYYB
     Dosage: 700 MG, MAINTENANCE EVERY 4 WEEKS
     Route: 042
     Dates: start: 20181015, end: 20181015
  14. PREDNISONE. [Concomitant]
     Active Substance: PREDNISONE
     Dosage: 40 MG, CURRENTLY AND TAPERING DOSE; 16 WEEK TAPER
     Dates: start: 201806
  15. DIPHENHYDRAMINE. [Concomitant]
     Active Substance: DIPHENHYDRAMINE
     Dosage: 50 MG PER OS
     Route: 048
     Dates: start: 20190110, end: 20190110
  16. INFLECTRA [Suspect]
     Active Substance: INFLIXIMAB-DYYB
     Indication: COLITIS ULCERATIVE
     Dosage: 700MG (10 MG/KG), WEEK 0, 2 AND WEEK 6 AND Q 8 WEEKS THEREAFTER
     Route: 042
     Dates: start: 20180530, end: 20180620
  17. INFLECTRA [Suspect]
     Active Substance: INFLIXIMAB-DYYB
     Dosage: 700 MG, MAINTENANCE EVERY 4 WEEKS
     Route: 042
     Dates: start: 20180816, end: 20180816
  18. INFLECTRA [Suspect]
     Active Substance: INFLIXIMAB-DYYB
     Dosage: 700MG MAINTENANCE EVERY 4 WEEKS
     Route: 042
     Dates: start: 20190409, end: 20190409
  19. INFLECTRA [Suspect]
     Active Substance: INFLIXIMAB-DYYB
     Dosage: 700MG MAINTENANCE EVERY 4 WEEKS
     Route: 042
     Dates: start: 20190503, end: 20190503
  20. INFLECTRA [Suspect]
     Active Substance: INFLIXIMAB-DYYB
     Dosage: 700MG MAINTENANCE EVERY 4 WEEKS
     Route: 042
     Dates: start: 20190628
  21. SOLU-MEDROL [Concomitant]
     Active Substance: METHYLPREDNISOLONE SODIUM SUCCINATE
     Dosage: UNK
     Route: 042
  22. ACETAMINOPHEN. [Concomitant]
     Active Substance: ACETAMINOPHEN
     Dosage: 650 MG, UNK
     Route: 048
     Dates: start: 20190110, end: 20190110
  23. INFLECTRA [Suspect]
     Active Substance: INFLIXIMAB-DYYB
     Dosage: 700MG MAINTENANCE EVERY 4 WEEKS
     Route: 042
     Dates: start: 20190308, end: 20190308
  24. INFLECTRA [Suspect]
     Active Substance: INFLIXIMAB-DYYB
     Dosage: 700MG MAINTENANCE EVERY 4 WEEKS
     Route: 042
     Dates: start: 20190628
  25. INFLECTRA [Suspect]
     Active Substance: INFLIXIMAB-DYYB
     Dosage: 700MG EVERY 4 WEEKS
     Route: 042
     Dates: start: 20190909
  26. ZOLOFT [Concomitant]
     Active Substance: SERTRALINE HYDROCHLORIDE
     Dosage: 75 MG, DAILY
     Route: 048
  27. ATIVAN [Concomitant]
     Active Substance: LORAZEPAM
     Dosage: UNK, AS NEEDED
     Route: 065
  28. INFLECTRA [Suspect]
     Active Substance: INFLIXIMAB-DYYB
     Dosage: 700MG MAINTENANCE EVERY 4 WEEKS
     Route: 042
     Dates: start: 20181211
  29. INFLECTRA [Suspect]
     Active Substance: INFLIXIMAB-DYYB
     Dosage: 700MG EVERY 4 WEEKS
     Route: 042
     Dates: start: 20190909
  30. MEZAVANT [Concomitant]
     Active Substance: MESALAMINE
     Dosage: 2.4 G, DAILY
     Route: 048
     Dates: start: 2014

REACTIONS (9)
  - Oral disorder [Recovered/Resolved]
  - Animal bite [Recovering/Resolving]
  - Therapeutic product effect incomplete [Recovering/Resolving]
  - Condition aggravated [Recovering/Resolving]
  - Blood pressure fluctuation [Not Recovered/Not Resolved]
  - Off label use [Not Recovered/Not Resolved]
  - Fatigue [Unknown]
  - Product use issue [Not Recovered/Not Resolved]
  - Dizziness [Unknown]

NARRATIVE: CASE EVENT DATE: 20180530
